FAERS Safety Report 16007429 (Version 1)
Quarter: 2019Q1

REPORT INFORMATION
  Report Type: Spontaneous
  Country: US (occurrence: US)
  Receive Date: 20190226
  Receipt Date: 20190226
  Transmission Date: 20190418
  Serious: No
  Sender: FDA-Public Use
  Company Number: US-AMGEN INC.-USASP2019027155

PATIENT

DRUGS (1)
  1. AIMOVIG [Suspect]
     Active Substance: ERENUMAB-AOOE
     Indication: MIGRAINE
     Dosage: 70 MG AND 140 MG
     Route: 065

REACTIONS (9)
  - Injection site pruritus [Unknown]
  - Insomnia [Unknown]
  - Migraine [Unknown]
  - Alopecia [Unknown]
  - Mood swings [Unknown]
  - Constipation [Unknown]
  - Dyspnoea [Unknown]
  - Abdominal distension [Unknown]
  - Heart rate increased [Unknown]
